FAERS Safety Report 4588528-5 (Version None)
Quarter: 2005Q1

REPORT INFORMATION
  Report Type: 
  Country: None (occurrence: None)
  Receive Date: 20050222
  Receipt Date: 20050211
  Transmission Date: 20050727
  Serious: Yes (Other)
  Sender: FDA-Public Use
  Company Number: 200510595FR

PATIENT
  Age: 84 Year
  Sex: Female
  Weight: 55 kg

DRUGS (1)
  1. ENOXAPARIN [Suspect]
     Route: 058
     Dates: start: 20050204, end: 20050210

REACTIONS (1)
  - NEUTROPENIA [None]
